FAERS Safety Report 20887228 (Version 1)
Quarter: 2022Q2

REPORT INFORMATION
  Report Type: Report from Study
  Country: US (occurrence: US)
  Receive Date: 20220528
  Receipt Date: 20220528
  Transmission Date: 20220720
  Serious: Yes (Other)
  Sender: FDA-Public Use
  Company Number: US-TEVA-2022-US-2039721

PATIENT
  Age: 45 Year
  Sex: Female

DRUGS (1)
  1. COPAXONE [Suspect]
     Active Substance: GLATIRAMER ACETATE
     Dosage: FORM STRENGTH AND DOSE: UNKNOWN
     Route: 065

REACTIONS (11)
  - Sweat gland tumour [Unknown]
  - Vulval disorder [Unknown]
  - Lack of injection site rotation [Unknown]
  - Injection site pain [Recovered/Resolved]
  - Herpes zoster [Unknown]
  - Tumour pain [Unknown]
  - Lipoatrophy [Unknown]
  - Injection site nerve damage [Unknown]
  - Lymphadenopathy [Unknown]
  - Anxiety [Unknown]
  - Mental disorder [Unknown]

NARRATIVE: CASE EVENT DATE: 20210101
